FAERS Safety Report 11739870 (Version 7)
Quarter: 2016Q1

REPORT INFORMATION
  Report Type: Spontaneous
  Country: IT (occurrence: IT)
  Receive Date: 20151113
  Receipt Date: 20160226
  Transmission Date: 20160525
  Serious: Yes (Other)
  Sender: FDA-Public Use
  Company Number: IT-PFIZER INC-2015383968

PATIENT
  Age: 26 Year
  Sex: Male

DRUGS (4)
  1. XANAX [Suspect]
     Active Substance: ALPRAZOLAM
     Indication: PANIC ATTACK
     Dosage: 21 GTT, UNK
     Route: 048
     Dates: start: 201510
  2. XANAX [Suspect]
     Active Substance: ALPRAZOLAM
     Indication: ANXIETY
     Dosage: 36 GTT, UNK
     Route: 048
     Dates: start: 201506, end: 201510
  3. XANAX [Suspect]
     Active Substance: ALPRAZOLAM
     Dosage: 6 GTT, 3X/DAY
     Route: 048
  4. XANAX [Suspect]
     Active Substance: ALPRAZOLAM
     Dosage: 0.75 GTT, UNK
     Dates: start: 2015

REACTIONS (17)
  - Disturbance in attention [Not Recovered/Not Resolved]
  - Musculoskeletal chest pain [Not Recovered/Not Resolved]
  - Nausea [Recovered/Resolved]
  - Headache [Not Recovered/Not Resolved]
  - Vomiting [Recovered/Resolved]
  - Fatigue [Not Recovered/Not Resolved]
  - Ocular hyperaemia [Unknown]
  - Sensory loss [Not Recovered/Not Resolved]
  - Cognitive disorder [Unknown]
  - Dizziness [Not Recovered/Not Resolved]
  - Somnolence [Unknown]
  - Feeling abnormal [Unknown]
  - Abdominal pain upper [Unknown]
  - Drug dependence [Unknown]
  - Muscle disorder [Unknown]
  - Amnesia [Unknown]
  - Feeling of relaxation [Unknown]

NARRATIVE: CASE EVENT DATE: 2015
